FAERS Safety Report 7323383 (Version 4)
Quarter: 2012Q4

REPORT INFORMATION
  Report Type: 
  Country: US (occurrence: US)
  Receive Date: 20100318
  Receipt Date: 20121218
  Transmission Date: 20130627
  Serious: Yes (Other)
  Sender: FDA-Public Use
  Company Number: US-BAYER-201016141NA

PATIENT
  Age: 21 Year
  Sex: Female
  Weight: 73.92 kg

DRUGS (1)
  1. MIRENA [Suspect]
     Indication: CONTRACEPTION
     Dosage: 20 ?g/d, CONT
     Route: 015
     Dates: start: 20091211, end: 20100401

REACTIONS (5)
  - Pregnancy with contraceptive device [Recovered/Resolved]
  - Nausea [Recovered/Resolved]
  - Vaginal haemorrhage [Recovered/Resolved]
  - Drug ineffective [None]
  - Complication of device removal [Recovered/Resolved]
